FAERS Safety Report 10183046 (Version 1)
Quarter: 2014Q2

REPORT INFORMATION
  Report Type: Spontaneous
  Country: US (occurrence: US)
  Receive Date: 20140520
  Receipt Date: 20140520
  Transmission Date: 20141212
  Serious: Yes (Hospitalization)
  Sender: FDA-Public Use
  Company Number: US-BAYER-2014-069407

PATIENT
  Age: 70 Year
  Sex: Female
  Weight: 70.3 kg

DRUGS (3)
  1. BAYER ASPIRIN REGIMEN ADULT LOW STRENGTH [Suspect]
     Indication: ISCHAEMIC HEART DISEASE PROPHYLAXIS
     Dosage: 3X A WEEK, CURRENTLY 1 DAILY
     Route: 048
     Dates: start: 2011
  2. PREMPRO [Concomitant]
     Dosage: UNK UNK, TIW
  3. LATANOPROST [Concomitant]

REACTIONS (3)
  - Myocardial infarction [Recovered/Resolved]
  - Inappropriate schedule of drug administration [None]
  - Therapeutic response changed [Recovered/Resolved]
